FAERS Safety Report 9290221 (Version 1)
Quarter: 2013Q2

REPORT INFORMATION
  Report Type: Spontaneous
  Country: FR (occurrence: FR)
  Receive Date: 20130515
  Receipt Date: 20130515
  Transmission Date: 20140414
  Serious: Yes (Other)
  Sender: FDA-Public Use
  Company Number: FR-SANOFI-AVENTIS-2013SA046627

PATIENT
  Sex: Female

DRUGS (6)
  1. LANTUS [Suspect]
     Indication: DIABETES MELLITUS
     Route: 058
  2. CORTICOSTEROID NOS [Suspect]
     Indication: NEUROMYOPATHY
     Route: 065
  3. DIAMICRON [Concomitant]
     Indication: DIABETES MELLITUS
     Dosage: STRENGTH: 60MG
     Route: 048
     Dates: start: 201304
  4. JANUVIA [Concomitant]
     Indication: DIABETES MELLITUS
     Route: 048
  5. NOVONORM [Concomitant]
     Indication: DIABETES MELLITUS
     Route: 048
  6. IXPRIM [Concomitant]
     Indication: PAIN

REACTIONS (6)
  - Angina pectoris [Unknown]
  - Arterial spasm [Unknown]
  - Diabetes mellitus inadequate control [Recovering/Resolving]
  - Glycosylated haemoglobin [Recovering/Resolving]
  - Blood glucose increased [Recovering/Resolving]
  - Blood glucose increased [Recovering/Resolving]
